FAERS Safety Report 23446583 (Version 1)
Quarter: 2024Q1

REPORT INFORMATION
  Report Type: Spontaneous
  Country: US (occurrence: None)
  Receive Date: 20240125
  Receipt Date: 20240125
  Transmission Date: 20240410
  Serious: Yes (Hospitalization)
  Sender: FDA-Public Use
  Company Number: None

PATIENT
  Sex: Male

DRUGS (4)
  1. NUBEQA [Suspect]
     Active Substance: DAROLUTAMIDE
     Indication: Prostate cancer
     Dosage: 600MG 2 TIMES A DAY ORAL
     Route: 048
     Dates: start: 202312
  2. ERLEADA [Suspect]
     Active Substance: APALUTAMIDE
     Indication: Prostate cancer
     Dosage: 240MG 1 TIME A DAY PO
     Route: 048
     Dates: start: 202301
  3. LISINOPRIL [Suspect]
     Active Substance: LISINOPRIL
  4. AMLODIPINE [Suspect]
     Active Substance: AMLODIPINE BESYLATE

REACTIONS (3)
  - Hypotension [None]
  - Therapy change [None]
  - Therapy cessation [None]
